FAERS Safety Report 17369623 (Version 5)
Quarter: 2020Q2

REPORT INFORMATION
  Report Type: Report from Study
  Country: None (occurrence: PT)
  Receive Date: 20200204
  Receipt Date: 20200428
  Transmission Date: 20200713
  Serious: Yes (Hospitalization)
  Sender: FDA-Public Use
  Company Number: PT-ABBVIE-20K-130-3262305-00

PATIENT
  Age: 18 Year
  Sex: Male

DRUGS (4)
  1. HUMIRA [Suspect]
     Active Substance: ADALIMUMAB
     Indication: PSORIASIS
     Dosage: LOADING DOSE 1
     Route: 058
     Dates: start: 20180321, end: 20180321
  2. HUMIRA [Suspect]
     Active Substance: ADALIMUMAB
     Route: 058
     Dates: start: 20200212
  3. HUMIRA [Suspect]
     Active Substance: ADALIMUMAB
     Dosage: LOADING DOSE 2
     Route: 058
     Dates: start: 20180328, end: 20180328
  4. HUMIRA [Suspect]
     Active Substance: ADALIMUMAB
     Route: 058
     Dates: start: 20180411, end: 20200115

REACTIONS (4)
  - Psychotic disorder [Recovering/Resolving]
  - Aggression [Recovering/Resolving]
  - Psychotic disorder [Recovered/Resolved]
  - Agitation [Recovering/Resolving]

NARRATIVE: CASE EVENT DATE: 2020
